FAERS Safety Report 20040697 (Version 1)
Quarter: 2021Q4

REPORT INFORMATION
  Report Type: Spontaneous
  Country: US (occurrence: None)
  Receive Date: 20211105
  Receipt Date: 20211105
  Transmission Date: 20220303
  Serious: Yes (Hospitalization)
  Sender: FDA-Public Use
  Company Number: None

PATIENT
  Age: 10 Year
  Sex: Male
  Weight: 48 kg

DRUGS (5)
  1. METHOTREXATE [Suspect]
     Active Substance: METHOTREXATE
     Dates: end: 20210919
  2. VINCRISTINE SULFATE [Suspect]
     Active Substance: VINCRISTINE SULFATE
     Dates: end: 20210924
  3. CYCLOPHOSPHAMIDE [Suspect]
     Active Substance: CYCLOPHOSPHAMIDE
     Dates: end: 20210909
  4. CYTARABINE [Suspect]
     Active Substance: CYTARABINE
     Dates: end: 20210919
  5. THIOGUANINE ANHYDROUS [Suspect]
     Active Substance: THIOGUANINE ANHYDROUS
     Dates: end: 20210924

REACTIONS (9)
  - Dysarthria [None]
  - Facial paralysis [None]
  - Muscular weakness [None]
  - Delirium [None]
  - Toxicity to various agents [None]
  - Nausea [None]
  - Feeling abnormal [None]
  - Dyskinesia [None]
  - White matter lesion [None]

NARRATIVE: CASE EVENT DATE: 20210924
